FAERS Safety Report 14371854 (Version 1)
Quarter: 2018Q1

REPORT INFORMATION
  Report Type: Spontaneous
  Country: FR (occurrence: FR)
  Receive Date: 20180110
  Receipt Date: 20180110
  Transmission Date: 20180509
  Serious: Yes (Hospitalization, Other)
  Sender: FDA-Public Use
  Company Number: FR-MYLANLABS-2018M1002022

PATIENT

DRUGS (1)
  1. URSODEOXYCHOLIC ACID [Suspect]
     Active Substance: URSODIOL
     Indication: CHOLELITHIASIS
     Dosage: 250 MG, BID (DEPENDING ON TREATMENT GROUP EITHER ONE DOSE OR 2-250MG DOSE PER DAY
     Route: 065

REACTIONS (6)
  - Product use in unapproved indication [Unknown]
  - Biliary colic [Unknown]
  - Cholelithiasis [Unknown]
  - Cholecystitis acute [Unknown]
  - Hernial eventration [Unknown]
  - Cholecystectomy [Unknown]
